FAERS Safety Report 25599837 (Version 2)
Quarter: 2025Q3

REPORT INFORMATION
  Report Type: Spontaneous
  Country: US (occurrence: US)
  Receive Date: 20250724
  Receipt Date: 20250808
  Transmission Date: 20251020
  Serious: Yes (Other)
  Sender: TEVA
  Company Number: US-TEVA-VS-3352309

PATIENT
  Age: 42 Year
  Sex: Female

DRUGS (6)
  1. BUPRENORPHINE\NALOXONE [Interacting]
     Active Substance: BUPRENORPHINE\NALOXONE
     Indication: Bipolar disorder
     Route: 065
  2. BUPRENORPHINE\NALOXONE [Interacting]
     Active Substance: BUPRENORPHINE\NALOXONE
     Indication: Bipolar disorder
     Route: 065
  3. BUPRENORPHINE\NALOXONE [Interacting]
     Active Substance: BUPRENORPHINE\NALOXONE
     Indication: Bipolar disorder
     Route: 065
  4. BUSPIRONE [Concomitant]
     Active Substance: BUSPIRONE HYDROCHLORIDE
     Indication: Product used for unknown indication
     Route: 065
  5. BUPROPION [Concomitant]
     Active Substance: BUPROPION
     Indication: Product used for unknown indication
     Route: 065
  6. OLANZAPINE\SAMIDORPHAN L-MALATE [Interacting]
     Active Substance: OLANZAPINE\SAMIDORPHAN L-MALATE
     Indication: Bipolar disorder
     Dosage: 10MG/10MG
     Route: 065

REACTIONS (9)
  - Drug dependence [Not Recovered/Not Resolved]
  - Myalgia [Recovered/Resolved]
  - Hyperhidrosis [Recovered/Resolved]
  - Anxiety [Recovering/Resolving]
  - Insomnia [Recovering/Resolving]
  - Drug interaction [Unknown]
  - Agitation [Recovering/Resolving]
  - Drug withdrawal syndrome [Recovering/Resolving]
  - Drug ineffective [Unknown]
